FAERS Safety Report 23366605 (Version 7)
Quarter: 2024Q1

REPORT INFORMATION
  Report Type: Report from Study
  Country: JP (occurrence: JP)
  Receive Date: 20240104
  Receipt Date: 20240216
  Transmission Date: 20240410
  Serious: Yes (Hospitalization)
  Sender: FDA-Public Use
  Company Number: JP-PFIZER INC-PV202300209781

PATIENT
  Age: 43 Year
  Sex: Female
  Weight: 80.8 kg

DRUGS (7)
  1. TRASTUZUMAB [Suspect]
     Active Substance: TRASTUZUMAB
     Indication: Breast cancer metastatic
     Dosage: 6 MG/KG, ONCE EVERY 21 DAYS, CYCLE BEFORE EVENT ONSET C5D1, TOTAL DOSE 2535 MG
     Route: 042
     Dates: start: 20230714, end: 20231113
  2. INVESTIGATIONAL PRODUCT [Suspect]
     Active Substance: INVESTIGATIONAL PRODUCT
     Indication: Breast cancer metastatic
     Dosage: 300MG, 2X/DAY EVERY 21 DAYS, CYCLE BEFORE EVENT ONSET C4D20, TUCATINIB/PLACEBO
     Route: 048
     Dates: start: 20230714
  3. INVESTIGATIONAL PRODUCT [Suspect]
     Active Substance: INVESTIGATIONAL PRODUCT
     Dosage: 250MG, 2X/DAY EVERY 21 DAYS, CYCLE BEFORE EVENT ONSET C4D20, TUCATINIB/PLACEBO
     Route: 048
     Dates: end: 20231025
  4. PERJETA [Suspect]
     Active Substance: PERTUZUMAB
     Indication: Breast cancer metastatic
     Dosage: 420 MG, EVERY 21 DAYS, CYCLE BEFORE EVENT ONSET C5D1, TOTAL DOSE 2100 MG, 420 MG/VIAL
     Route: 042
     Dates: start: 20230714, end: 20231113
  5. URSODIOL [Concomitant]
     Active Substance: URSODIOL
     Indication: Aspartate aminotransferase increased
     Dosage: 600 MG
     Dates: start: 20231106
  6. URSODIOL [Concomitant]
     Active Substance: URSODIOL
     Indication: Alanine aminotransferase increased
  7. TOCOPHERYL NICOTINATE [Concomitant]
     Active Substance: TOCOPHERYL NICOTINATE, D-.ALPHA.
     Indication: Steatohepatitis
     Dosage: 600 MG
     Dates: start: 20231204, end: 20231213

REACTIONS (1)
  - Drug-induced liver injury [Recovered/Resolved]

NARRATIVE: CASE EVENT DATE: 20231214
